FAERS Safety Report 7423623-4 (Version None)
Quarter: 2011Q2

REPORT INFORMATION
  Report Type: 
  Country: None (occurrence: None)
  Receive Date: 20110419
  Receipt Date: 20110413
  Transmission Date: 20111010
  Serious: Yes (Hospitalization, Other)
  Sender: FDA-Public Use
  Company Number: US-ABBOTT-11P-163-0709599-00

PATIENT
  Sex: Female
  Weight: 93.524 kg

DRUGS (2)
  1. HUMIRA [Suspect]
     Indication: RHEUMATOID ARTHRITIS
     Dates: start: 20100916, end: 20110225
  2. HUMIRA [Suspect]
     Dates: end: 20110307

REACTIONS (3)
  - FATIGUE [None]
  - DIFFUSE LARGE B-CELL LYMPHOMA [None]
  - LUNG ABSCESS [None]
